FAERS Safety Report 4527646-4 (Version None)
Quarter: 2004Q4

REPORT INFORMATION
  Report Type: 
  Country: None (occurrence: None)
  Receive Date: 20041215
  Receipt Date: 20041210
  Transmission Date: 20050328
  Serious: Yes (Death, Hospitalization)
  Sender: FDA-Public Use
  Company Number: US-AMGEN-US102908

PATIENT
  Age: 72 Year
  Sex: Female
  Weight: 90 kg

DRUGS (4)
  1. ENBREL [Suspect]
     Indication: RHEUMATOID ARTHRITIS
     Dates: start: 20010611, end: 20040821
  2. COVERSYL [Suspect]
     Dates: start: 19951011
  3. SOLU-MEDROL [Suspect]
     Dates: start: 20040822
  4. VIOXX [Suspect]
     Dates: start: 20040825

REACTIONS (7)
  - COLITIS [None]
  - CONDITION AGGRAVATED [None]
  - DEATH [None]
  - GASTROINTESTINAL DISORDER [None]
  - INTESTINAL PERFORATION [None]
  - PERITONITIS [None]
  - PNEUMOPERITONEUM [None]
